FAERS Safety Report 4498984-9 (Version None)
Quarter: 2004Q4

REPORT INFORMATION
  Report Type: 
  Country: None (occurrence: None)
  Receive Date: 20041110
  Receipt Date: 20041110
  Transmission Date: 20050328
  Serious: Yes (Hospitalization)
  Sender: FDA-Public Use
  Company Number: None

PATIENT
  Sex: Female
  Weight: 75.5 kg

DRUGS (6)
  1. CETUXIMAB [Suspect]
     Indication: RECTAL CANCER
     Dosage: 250 MG/M2 970 MG IV
     Route: 042
     Dates: start: 20041102
  2. XELODA [Suspect]
     Dosage: 800 MG/M2 M + PO BID
     Route: 048
     Dates: start: 20041027
  3. OXALIPLATIN [Suspect]
     Dosage: 100 MG/M2 (192 MG IV
     Route: 042
  4. RADIATION [Suspect]
     Dosage: 180 DAY
  5. LEVOXYL [Concomitant]
  6. LEVOXYL [Concomitant]

REACTIONS (2)
  - DIARRHOEA [None]
  - NAUSEA [None]
